FAERS Safety Report 17256915 (Version 1)
Quarter: 2020Q1

REPORT INFORMATION
  Report Type: Spontaneous
  Country: US (occurrence: US)
  Receive Date: 20200108
  Receipt Date: 20200108
  Transmission Date: 20200409
  Serious: No
  Sender: FDA-Public Use
  Company Number: None

PATIENT
  Age: 8 Year
  Sex: Male
  Weight: 28.12 kg

DRUGS (2)
  1. SERTRALINE HYDROCHLORIDE. [Suspect]
     Active Substance: SERTRALINE HYDROCHLORIDE
     Route: 048
     Dates: start: 20200102, end: 20200107
  2. N/A [Suspect]
     Active Substance: UNSPECIFIED INGREDIENT

REACTIONS (5)
  - Anxiety [None]
  - Product substitution issue [None]
  - Anger [None]
  - Behaviour disorder [None]
  - Drug ineffective [None]

NARRATIVE: CASE EVENT DATE: 20200102
